FAERS Safety Report 6270889-2 (Version None)
Quarter: 2009Q3

REPORT INFORMATION
  Report Type: 
  Country: None (occurrence: None)
  Receive Date: 20090716
  Receipt Date: 20090319
  Transmission Date: 20100115
  Serious: Yes (Hospitalization)
  Sender: FDA-Public Use
  Company Number: JP-ABBOTT-09P-087-0585021-00

PATIENT
  Age: 78 Year
  Sex: Female
  Weight: 55 kg

DRUGS (10)
  1. CLARITHROMYCIN [Suspect]
     Indication: BRONCHIECTASIS
     Route: 048
     Dates: end: 20090215
  2. CLARITHROMYCIN [Suspect]
     Dates: start: 20090401
  3. MUCODYNE [Suspect]
     Indication: NASOPHARYNGITIS
     Route: 048
     Dates: start: 20090109, end: 20090123
  4. MUCODYNE [Suspect]
     Dosage: 1500MG DAILY
     Dates: start: 20090320
  5. AMOBAN [Suspect]
     Indication: INSOMNIA
     Route: 048
     Dates: end: 20090215
  6. AMOBAN [Suspect]
     Dates: start: 20090312
  7. CONSTAN [Suspect]
     Indication: PSYCHOSOMATIC DISEASE
     Route: 048
     Dates: end: 20090215
  8. DOGMATYL [Concomitant]
     Indication: PSYCHOSOMATIC DISEASE
     Route: 048
     Dates: start: 20090201, end: 20090215
  9. CRAVIT [Concomitant]
     Indication: NASOPHARYNGITIS
     Route: 048
     Dates: start: 20090109, end: 20090123
  10. CRAVIT [Concomitant]
     Route: 048
     Dates: start: 20090201, end: 20090215

REACTIONS (2)
  - EOSINOPHILIC PNEUMONIA [None]
  - NASOPHARYNGITIS [None]
